FAERS Safety Report 10482470 (Version 4)
Quarter: 2018Q4

REPORT INFORMATION
  Report Type: Spontaneous
  Country: FR (occurrence: FR)
  Receive Date: 20140929
  Receipt Date: 20181102
  Transmission Date: 20190204
  Serious: Yes (Hospitalization, Other)
  Sender: FDA-Public Use
  Company Number: FR-PFIZER INC-2014264467

PATIENT
  Age: 73 Year
  Sex: Female
  Weight: 48 kg

DRUGS (15)
  1. ACTISKENAN [Interacting]
     Active Substance: MORPHINE SULFATE
     Indication: PAIN
     Dosage: 5 MG, EVERY 6 HOURS IF NEEDED
     Dates: end: 201408
  2. AMLOR [Concomitant]
     Active Substance: AMLODIPINE BESYLATE
     Dosage: 10 MG, 1X/DAY
  3. INEXIUM [Interacting]
     Active Substance: ESOMEPRAZOLE
  4. INEXIUM [Concomitant]
     Active Substance: ESOMEPRAZOLE
     Dosage: 20 MG, DAILY
  5. TOPALGIC (TRAMADOL HYDROCHLORIDE) [Interacting]
     Active Substance: TRAMADOL HYDROCHLORIDE
     Indication: PAIN
     Dosage: 50 MG, EVERY 6 HOURS IF NEEDED
     Route: 048
  6. ACTISKENAN [Interacting]
     Active Substance: MORPHINE SULFATE
     Dosage: UNK
     Dates: start: 20180801
  7. IVABRADINE HYDROCHLORIDE [Interacting]
     Active Substance: IVABRADINE HYDROCHLORIDE
  8. PARACETAMOL [Concomitant]
     Active Substance: ACETAMINOPHEN
     Dosage: 1 G, EVERY 6 HOURS
  9. TAHOR [Concomitant]
     Active Substance: ATORVASTATIN CALCIUM
     Dosage: 40 MG, DAILY
  10. CARDENSIEL [Concomitant]
     Active Substance: BISOPROLOL FUMARATE
     Dosage: 10 MG, AT LUNCH
  11. LYRICA [Suspect]
     Active Substance: PREGABALIN
     Indication: PAIN
     Dosage: 25 MG, 3X/DAY
     Route: 048
     Dates: end: 201408
  12. MORPHINE SULFATE. [Interacting]
     Active Substance: MORPHINE SULFATE
     Indication: PAIN
     Dosage: UNK
     Dates: start: 20140801
  13. PROCORALAN [Concomitant]
     Active Substance: IVABRADINE
     Dosage: 7.5 MG, 2X/DAY
  14. LEVOTHYROX [Concomitant]
     Active Substance: LEVOTHYROXINE
     Dosage: 75 UG, 1X/DAY
  15. JANUVIA [Concomitant]
     Active Substance: SITAGLIPTIN PHOSPHATE
     Dosage: 100 MG, DAILY

REACTIONS (6)
  - Renal failure [Unknown]
  - Drug ineffective for unapproved indication [Unknown]
  - Fall [Recovered/Resolved]
  - Humerus fracture [Recovered/Resolved]
  - Drug interaction [Recovered/Resolved]
  - Dizziness [Recovered/Resolved]

NARRATIVE: CASE EVENT DATE: 20140801
